FAERS Safety Report 4556675-X (Version None)
Quarter: 2005Q1

REPORT INFORMATION
  Report Type: 
  Country: None (occurrence: None)
  Receive Date: 20050120
  Receipt Date: 20041220
  Transmission Date: 20050727
  Serious: Yes (Other)
  Sender: FDA-Public Use
  Company Number: CA-AMGEN-US104155

PATIENT
  Sex: Female

DRUGS (3)
  1. ENBREL [Suspect]
     Indication: ANKYLOSING SPONDYLITIS
     Route: 058
     Dates: start: 20040601, end: 20041028
  2. METHOTREXATE [Concomitant]
  3. VOLTAREN [Concomitant]
     Dates: start: 20041206

REACTIONS (5)
  - ARTHROPOD BITE [None]
  - ERYTHEMA INDURATUM [None]
  - INFLAMMATORY BOWEL DISEASE [None]
  - INTESTINAL FISTULA [None]
  - PNEUMONIA [None]
